FAERS Safety Report 5060948-4 (Version None)
Quarter: 2006Q2

REPORT INFORMATION
  Report Type: 
  Country: None (occurrence: None)
  Receive Date: 20060630
  Receipt Date: 20060516
  Transmission Date: 20061013
  Serious: No
  Sender: FDA-Public Use
  Company Number: KDL179754

PATIENT
  Sex: Female

DRUGS (3)
  1. SENSIPAR [Suspect]
     Indication: HYPERPARATHYROIDISM SECONDARY
     Dosage: 30 MG, 1 IN 1 DAYS
     Dates: start: 20060501
  2. CEFAZOLIN SODIUM [Concomitant]
  3. CEFTAZIDIME [Concomitant]

REACTIONS (2)
  - PHARYNGOLARYNGEAL PAIN [None]
  - PRURITUS GENERALISED [None]
